FAERS Safety Report 5699941-7 (Version None)
Quarter: 2008Q2

REPORT INFORMATION
  Report Type: 
  Country: None (occurrence: None)
  Receive Date: 20080410
  Receipt Date: 20080407
  Transmission Date: 20081010
  Serious: Yes (Death)
  Sender: FDA-Public Use
  Company Number: NZ-MERCK-0804NZL00003

PATIENT
  Age: 77 Year
  Sex: Male

DRUGS (5)
  1. ZOCOR [Suspect]
     Indication: HYPERCHOLESTEROLAEMIA
     Route: 048
     Dates: start: 20020101, end: 20061124
  2. ENALAPRIL MALEATE [Suspect]
     Indication: ESSENTIAL HYPERTENSION
     Route: 048
     Dates: start: 20020101, end: 20061124
  3. ASPIRIN [Concomitant]
     Route: 048
     Dates: end: 20061124
  4. FELODIPINE [Concomitant]
     Indication: ESSENTIAL HYPERTENSION
     Route: 048
     Dates: start: 19980101, end: 20061124
  5. CETIRIZINE HYDROCHLORIDE [Concomitant]
     Route: 048
     Dates: start: 20020101, end: 20061124

REACTIONS (1)
  - PANCREATITIS [None]
